FAERS Safety Report 8144266-3 (Version None)
Quarter: 2012Q1

REPORT INFORMATION
  Report Type: 
  Country: None (occurrence: None)
  Receive Date: 20120214
  Receipt Date: 20120207
  Transmission Date: 20120608
  Serious: Yes (Hospitalization)
  Sender: FDA-Public Use
  Company Number: 2011SP040942

PATIENT
  Age: 38 Year
  Sex: Female
  Weight: 65.7716 kg

DRUGS (4)
  1. VALTREX [Concomitant]
  2. IMITREX [Concomitant]
  3. NUVARING [Suspect]
     Indication: HEADACHE
     Dates: start: 20090904, end: 20090915
  4. YAZ [Concomitant]

REACTIONS (18)
  - HEADACHE [None]
  - DYSMENORRHOEA [None]
  - INJURY [None]
  - DYSPNOEA [None]
  - MENSTRUATION IRREGULAR [None]
  - DEPRESSION [None]
  - CYST [None]
  - PULMONARY EMBOLISM [None]
  - BACK PAIN [None]
  - NAUSEA [None]
  - ACNE [None]
  - VOMITING [None]
  - MENORRHAGIA [None]
  - CHEST PAIN [None]
  - EMOTIONAL DISORDER [None]
  - THROMBOSIS [None]
  - ANXIETY [None]
  - STRESS [None]
